FAERS Safety Report 9314287 (Version 1)
Quarter: 2013Q2

REPORT INFORMATION
  Report Type: Spontaneous
  Country: DE (occurrence: DE)
  Receive Date: 20130529
  Receipt Date: 20130529
  Transmission Date: 20140414
  Serious: Yes (Other)
  Sender: FDA-Public Use
  Company Number: PHHY2013DE036545

PATIENT
  Sex: Male

DRUGS (2)
  1. RASILEZ HCT [Suspect]
     Indication: HYPERTENSION
     Dosage: 1 DF, (300 MG ALIS/ 12.5 MG HCT) QD
     Route: 048
     Dates: start: 20120202, end: 20130301
  2. NITRENDIPIN [Concomitant]
     Indication: HYPERTENSION
     Dosage: 1 DF (20 MG), QD
     Route: 048
     Dates: start: 20120202, end: 20130301

REACTIONS (10)
  - Oropharyngeal swelling [Recovered/Resolved]
  - Dysphagia [Recovered/Resolved]
  - Thirst [Recovered/Resolved]
  - Arthropathy [Recovered/Resolved]
  - Dermatitis exfoliative [Unknown]
  - Rash [Recovered/Resolved]
  - Rash pustular [Unknown]
  - Dizziness [Recovered/Resolved]
  - Dry mouth [Unknown]
  - Paraesthesia [Unknown]
